FAERS Safety Report 9542139 (Version 5)
Quarter: 2016Q4

REPORT INFORMATION
  Report Type: Spontaneous
  Country: BR (occurrence: BR)
  Receive Date: 20130923
  Receipt Date: 20161106
  Transmission Date: 20170207
  Serious: Yes (Hospitalization)
  Sender: FDA-Public Use
  Company Number: BR-ASTRAZENECA-2013SE70182

PATIENT
  Sex: Male
  Weight: 80.3 kg

DRUGS (12)
  1. NIMISULIDE [Concomitant]
  2. CRESTOR [Suspect]
     Active Substance: ROSUVASTATIN CALCIUM
     Indication: BLOOD CHOLESTEROL ABNORMAL
     Dosage: 40.0MG UNKNOWN
     Route: 048
  3. CRESTOR [Suspect]
     Active Substance: ROSUVASTATIN CALCIUM
     Indication: BLOOD CHOLESTEROL ABNORMAL
     Dosage: 10.0MG UNKNOWN
     Route: 048
     Dates: start: 20130703, end: 201602
  4. BIOBACILLUS [Concomitant]
     Indication: PROPHYLAXIS
  5. LISINOPRIL. [Suspect]
     Active Substance: LISINOPRIL
     Indication: HYPERTENSION
     Dosage: 10.0MG UNKNOWN
     Route: 048
  6. BRILINTA [Suspect]
     Active Substance: TICAGRELOR
     Dosage: 90.0MG UNKNOWN
     Route: 048
     Dates: start: 201307
  7. NEXIUM [Suspect]
     Active Substance: ESOMEPRAZOLE MAGNESIUM
     Indication: GASTRIC DISORDER
     Dosage: 40.0MG UNKNOWN
     Route: 048
  8. VITAMIN D [Concomitant]
     Active Substance: CHOLECALCIFEROL
     Indication: VITAMIN SUPPLEMENTATION
  9. CRESTOR [Suspect]
     Active Substance: ROSUVASTATIN CALCIUM
     Indication: BLOOD CHOLESTEROL ABNORMAL
     Dosage: 10.0MG UNKNOWN
     Route: 048
     Dates: end: 201308
  10. ASPIRINA PREVENT [Concomitant]
     Active Substance: ASPIRIN
     Indication: ANTICOAGULANT THERAPY
  11. OMEGA (PHYTOTHERAPEUTIC DRUG) [Concomitant]
  12. ALOE VERA [Concomitant]
     Active Substance: ALOE VERA LEAF
     Indication: DYSPEPSIA

REACTIONS (14)
  - Drug dose omission [Unknown]
  - Myocardial infarction [Recovered/Resolved]
  - Myalgia [Unknown]
  - Rash [Not Recovered/Not Resolved]
  - Thrombosis [Recovered/Resolved]
  - Renal colic [Recovered/Resolved]
  - Neck pain [Not Recovered/Not Resolved]
  - Diverticulitis [Recovered/Resolved]
  - Angular cheilitis [Not Recovered/Not Resolved]
  - Blood urine present [Recovered/Resolved]
  - Subcutaneous haematoma [Not Recovered/Not Resolved]
  - Headache [Not Recovered/Not Resolved]
  - Intentional product misuse [Unknown]
  - Heart rate decreased [Recovered/Resolved]

NARRATIVE: CASE EVENT DATE: 2013
